FAERS Safety Report 6796220-1 (Version None)
Quarter: 2010Q2

REPORT INFORMATION
  Report Type: 
  Country: None (occurrence: None)
  Receive Date: 20100624
  Receipt Date: 20100624
  Transmission Date: 20101027
  Serious: Yes (Hospitalization)
  Sender: FDA-Public Use
  Company Number: None

PATIENT
  Sex: Male
  Weight: 66.2 kg

DRUGS (1)
  1. ERLOTINIB HYDROCHLORIDE [Suspect]
     Dosage: 100MG QDAY PO
     Route: 048
     Dates: start: 20100614, end: 20100620

REACTIONS (1)
  - LIVER FUNCTION TEST ABNORMAL [None]
